FAERS Safety Report 6690761-3 (Version None)
Quarter: 2010Q2

REPORT INFORMATION
  Report Type: 
  Country: None (occurrence: None)
  Receive Date: 20100421
  Receipt Date: 20100412
  Transmission Date: 20101027
  Serious: Yes (Other)
  Sender: FDA-Public Use
  Company Number: JP-PFIZER INC-2010047406

PATIENT
  Age: 47 Year
  Sex: Female

DRUGS (3)
  1. AROMASIN [Suspect]
     Indication: BREAST CANCER
     Dosage: 25 MG, 1X/DAY
     Route: 048
     Dates: start: 20100315, end: 20100331
  2. ANASTROZOLE [Suspect]
     Indication: BREAST CANCER
     Dosage: UNK
     Route: 048
  3. LEUPLIN [Suspect]
     Indication: BREAST CANCER
     Dosage: UNK
     Route: 058

REACTIONS (1)
  - PNEUMONIA [None]
